FAERS Safety Report 8917520 (Version 1)
Quarter: 2012Q4

REPORT INFORMATION
  Report Type: Report from Study
  Country: US (occurrence: US)
  Receive Date: 20121120
  Receipt Date: 20121120
  Transmission Date: 20130627
  Serious: Yes (Hospitalization)
  Sender: FDA-Public Use
  Company Number: US-PFIZER INC-2012285415

PATIENT
  Age: 58 Year
  Sex: Female

DRUGS (3)
  1. GEMCITABINE HYDROCHLORIDE [Suspect]
     Indication: ADENOCARCINOMA PANCREAS
     Dosage: 200 mg/m2, weekly
  2. CETUXIMAB [Suspect]
     Indication: ADENOCARCINOMA PANCREAS
     Dosage: 400 mg/m2, week 1
  3. CETUXIMAB [Suspect]
     Dosage: 250 mg/m2, from week 2 to 7

REACTIONS (23)
  - Pneumonia herpes viral [Unknown]
  - Dyspnoea [Unknown]
  - Diarrhoea [Unknown]
  - Heparin-induced thrombocytopenia [None]
  - Renal failure acute [None]
  - Ascites [None]
  - Respiratory failure [None]
  - Carbohydrate antigen 19-9 increased [None]
  - Rash [None]
  - Skin fissures [None]
  - Fatigue [None]
  - Haemoglobin decreased [None]
  - Platelet count decreased [None]
  - Constipation [None]
  - Nausea [None]
  - Vomiting [None]
  - Oesophagitis [None]
  - Neuropathy peripheral [None]
  - Blood potassium decreased [None]
  - Blood magnesium decreased [None]
  - Blood sodium decreased [None]
  - Blood bicarbonate decreased [None]
  - Hypoxia [None]
